FAERS Safety Report 5564873-1 (Version None)
Quarter: 2007Q4

REPORT INFORMATION
  Report Type: 
  Country: None (occurrence: None)
  Receive Date: 20071218
  Receipt Date: 20071211
  Transmission Date: 20080405
  Serious: Yes (Other)
  Sender: FDA-Public Use
  Company Number: DE-BRISTOL-MYERS SQUIBB COMPANY-13949904

PATIENT
  Age: 50 Year
  Sex: Female
  Weight: 83 kg

DRUGS (13)
  1. ORENCIA [Suspect]
     Indication: SERONEGATIVE ARTHRITIS
     Dosage: 2ND INFUSION WAS ON 17-OCT-2007 AND 3RD INFUSION WAS ON 20-NOV-2007
     Route: 042
     Dates: start: 20071004
  2. REMICADE [Concomitant]
     Dates: start: 20070717
  3. BISOPROLOL FUMARATE + HCTZ [Concomitant]
  4. OMEPRAZOLE [Concomitant]
  5. DICLOFENAC [Concomitant]
  6. MYDOCALM [Concomitant]
     Dosage: 2-4 TABS/DAY WAS GIVEN BEFORE
  7. METHOTREXATE [Concomitant]
     Dosage: RESTARTED  SINCE 19-JUL-2007
  8. FOLIC ACID [Concomitant]
  9. NEXIUM [Concomitant]
  10. BISOHEXAL [Concomitant]
  11. HYDROCHLOROTHIAZIDE [Concomitant]
  12. METAMIZOLE [Concomitant]
  13. TRAMADOL HCL [Concomitant]

REACTIONS (5)
  - ALANINE AMINOTRANSFERASE INCREASED [None]
  - ASPARTATE AMINOTRANSFERASE INCREASED [None]
  - BLOOD ALKALINE PHOSPHATASE INCREASED [None]
  - GAMMA-GLUTAMYLTRANSFERASE INCREASED [None]
  - LIVER FUNCTION TEST ABNORMAL [None]
